FAERS Safety Report 4640115-6 (Version None)
Quarter: 2005Q2

REPORT INFORMATION
  Report Type: 
  Country: None (occurrence: None)
  Receive Date: 20050420
  Receipt Date: 20041209
  Transmission Date: 20051028
  Serious: Yes (Hospitalization)
  Sender: FDA-Public Use
  Company Number: US-ROCHE-388684

PATIENT
  Age: 58 Year
  Sex: Male

DRUGS (8)
  1. CAPECITABINE [Suspect]
     Indication: METASTATIC RENAL CELL CARCINOMA
     Dosage: GIVEN ON DAYS 1 THROUGH 21 (LENGTH OF CYCLE NOT REPORTED).  ACTUAL DOSE ADMINISTERED EQUATES TO 230+
     Route: 048
     Dates: start: 20040709
  2. GEMCITABINE HYDROCHLORIDE [Suspect]
     Indication: METASTATIC RENAL CELL CARCINOMA
     Dosage: GIVEN ON DAYS 1, 8 AND 15 (LENGTH OF CYCLE NOT REPORTED).  ACTUAL DOSE ADMINSTERED EQUATES TO 1380M+
     Route: 042
     Dates: start: 20040709
  3. LORTAB [Concomitant]
  4. PROTONIX [Concomitant]
     Route: 048
  5. MEGACE [Concomitant]
     Route: 048
  6. SUDAFED 12 HOUR [Concomitant]
  7. PAROXETINE HCL [Concomitant]
  8. ATIVAN [Concomitant]

REACTIONS (17)
  - ANXIETY [None]
  - ASPARTATE AMINOTRANSFERASE INCREASED [None]
  - BACTERAEMIA [None]
  - BACTEROIDES INFECTION [None]
  - BLOOD ALKALINE PHOSPHATASE INCREASED [None]
  - BLOOD PRESSURE INCREASED [None]
  - BUNDLE BRANCH BLOCK RIGHT [None]
  - FEBRILE NEUTROPENIA [None]
  - HAEMOGLOBIN DECREASED [None]
  - HEART RATE INCREASED [None]
  - METASTASES TO LIVER [None]
  - METASTASES TO SPLEEN [None]
  - PLEURITIC PAIN [None]
  - PNEUMONIA [None]
  - RADIATION PNEUMONITIS [None]
  - SINUS TACHYCARDIA [None]
  - WHITE BLOOD CELL COUNT DECREASED [None]
